FAERS Safety Report 6359500-X (Version None)
Quarter: 2009Q3

REPORT INFORMATION
  Report Type: 
  Country: None (occurrence: None)
  Receive Date: 20090917
  Receipt Date: 20090914
  Transmission Date: 20100115
  Serious: Yes (Other)
  Sender: FDA-Public Use
  Company Number: IT-ROXANE LABORATORIES, INC.-2009-RO-00936RO

PATIENT
  Age: 44 Year
  Sex: Male

DRUGS (4)
  1. METHOTREXATE [Suspect]
     Indication: CROHN'S DISEASE
     Route: 058
     Dates: end: 20070101
  2. METHOTREXATE [Suspect]
     Route: 058
  3. INFLIXIMAB [Suspect]
     Indication: CROHN'S DISEASE
  4. INFLIXIMAB [Suspect]

REACTIONS (3)
  - DISEASE RECURRENCE [None]
  - DRUG EXPOSURE BEFORE PREGNANCY [None]
  - PHARYNGITIS [None]
